FAERS Safety Report 13761196 (Version 1)
Quarter: 2017Q3

REPORT INFORMATION
  Report Type: Spontaneous
  Country: ES (occurrence: ES)
  Receive Date: 20170717
  Receipt Date: 20170717
  Transmission Date: 20171127
  Serious: Yes (Other)
  Sender: FDA-Public Use
  Company Number: ES-BIOGEN-2017BI00431031

PATIENT
  Age: 49 Year
  Sex: Female

DRUGS (4)
  1. OMEPRAZOLE. [Concomitant]
     Active Substance: OMEPRAZOLE
     Indication: PRODUCT USED FOR UNKNOWN INDICATION
     Route: 065
     Dates: start: 20141124, end: 20170610
  2. NEURONTIN [Concomitant]
     Active Substance: GABAPENTIN
     Indication: TRIGEMINAL NEURALGIA
     Route: 048
     Dates: start: 20141124, end: 20170610
  3. TYSABRI [Suspect]
     Active Substance: NATALIZUMAB
     Indication: SECONDARY PROGRESSIVE MULTIPLE SCLEROSIS
     Dosage: INFUSED OVER ONE HOUR
     Route: 042
     Dates: start: 2008, end: 20170505
  4. TEGRETOL [Concomitant]
     Active Substance: CARBAMAZEPINE
     Indication: TRIGEMINAL NEURALGIA
     Route: 048
     Dates: start: 20141124

REACTIONS (3)
  - Hypogammaglobulinaemia [Unknown]
  - Intentional product use issue [Recovered/Resolved]
  - Anaemia megaloblastic [Unknown]

NARRATIVE: CASE EVENT DATE: 2008
